FAERS Safety Report 7916470-8 (Version None)
Quarter: 2011Q4

REPORT INFORMATION
  Report Type: 
  Country: None (occurrence: None)
  Receive Date: 20111114
  Receipt Date: 20111102
  Transmission Date: 20120403
  Serious: Yes (Disabling, Other)
  Sender: FDA-Public Use
  Company Number: ACO_27735_2011

PATIENT
  Sex: Female

DRUGS (5)
  1. ESTRADERM [Concomitant]
  2. FLUOXETINE HYDROCHLORIDE [Concomitant]
  3. WELCHOL [Concomitant]
  4. AVONEX [Suspect]
     Indication: PRODUCT USED FOR UNKNOWN INDICATION
  5. AMPYRA [Suspect]
     Indication: GAIT DISTURBANCE
     Dosage: 10 MG, BID

REACTIONS (1)
  - ABASIA [None]
